FAERS Safety Report 11553955 (Version 1)
Quarter: 2015Q3

REPORT INFORMATION
  Report Type: Spontaneous
  Country: US (occurrence: US)
  Receive Date: 20150903
  Receipt Date: 20150903
  Transmission Date: 20151125
  Serious: No
  Sender: FDA-Public Use
  Company Number: US-ELI_LILLY_AND_COMPANY-US201008000782

PATIENT
  Age: 67 Year
  Sex: Male

DRUGS (7)
  1. HUMALOG [Suspect]
     Active Substance: INSULIN LISPRO
     Dosage: 46 U, EACH EVENING
  2. HUMALOG [Suspect]
     Active Substance: INSULIN LISPRO
     Dosage: 46 U, EACH EVENING
  3. HUMALOG [Suspect]
     Active Substance: INSULIN LISPRO
     Dosage: 42 U, UNK
  4. HUMALOG [Suspect]
     Active Substance: INSULIN LISPRO
     Indication: DIABETES MELLITUS
     Dosage: 46 U, EACH MORNING
  5. HUMALOG [Suspect]
     Active Substance: INSULIN LISPRO
     Dosage: 42 U, UNK
  6. HUMALOG [Suspect]
     Active Substance: INSULIN LISPRO
     Dosage: 46 U, EACH MORNING
  7. LANTUS [Concomitant]
     Active Substance: INSULIN GLARGINE

REACTIONS (11)
  - Blood glucose decreased [Recovered/Resolved]
  - Blood glucose decreased [Recovered/Resolved]
  - Blood glucose increased [Recovered/Resolved]
  - Feeling cold [Unknown]
  - Balance disorder [Unknown]
  - Visual impairment [Not Recovered/Not Resolved]
  - Fatigue [Unknown]
  - Hyperhidrosis [Unknown]
  - Movement disorder [Unknown]
  - Asthenia [Unknown]
  - Fall [Unknown]

NARRATIVE: CASE EVENT DATE: 20100626
